FAERS Safety Report 6556513-X (Version None)
Quarter: 2010Q1

REPORT INFORMATION
  Report Type: 
  Country: None (occurrence: None)
  Receive Date: 20100128
  Receipt Date: 20100122
  Transmission Date: 20100710
  Serious: Yes (Other)
  Sender: FDA-Public Use
  Company Number: JP-MERCK-1001USA03303

PATIENT
  Age: 39 Year
  Sex: Female

DRUGS (1)
  1. PEPCID RPD [Suspect]
     Route: 048
     Dates: start: 20080801, end: 20081001

REACTIONS (1)
  - INTERSTITIAL LUNG DISEASE [None]
